FAERS Safety Report 19107434 (Version 1)
Quarter: 2021Q2

REPORT INFORMATION
  Report Type: Spontaneous
  Country: US (occurrence: US)
  Receive Date: 20210408
  Receipt Date: 20210408
  Transmission Date: 20210717
  Serious: Yes (Hospitalization)
  Sender: FDA-Public Use
  Company Number: None

PATIENT
  Age: 75 Year
  Sex: Male
  Weight: 49.9 kg

DRUGS (1)
  1. ERBITUX [Suspect]
     Active Substance: CETUXIMAB
     Dates: end: 20210325

REACTIONS (5)
  - Malnutrition [None]
  - Dehydration [None]
  - Metabolic disorder [None]
  - Hypoxia [None]
  - Hypophagia [None]

NARRATIVE: CASE EVENT DATE: 20210329
